FAERS Safety Report 9929554 (Version 1)
Quarter: 2014Q1

REPORT INFORMATION
  Report Type: Spontaneous
  Country: US (occurrence: US)
  Receive Date: 20140227
  Receipt Date: 20140227
  Transmission Date: 20141002
  Serious: No
  Sender: FDA-Public Use
  Company Number: US-ASTRAZENECA-2014SE08116

PATIENT
  Sex: Female

DRUGS (5)
  1. METOPROLOL SUCCINATE [Suspect]
     Indication: HYPERTENSION
     Dosage: MANUFACTURED BY PAR, 50 MG, UNKNOWN FREQUENCY
     Route: 048
     Dates: start: 2006
  2. METOPROLOL SUCCINATE [Suspect]
     Indication: HYPERTENSION
     Dosage: MANUFACTURED BY WATSON, 50 MG, UNKNOWN FREQUENCY
     Route: 048
  3. TOPROL-XL [Concomitant]
     Indication: HYPERTENSION
  4. TOPROL-XL [Concomitant]
     Indication: HEART RATE IRREGULAR
  5. TOPROL-XL [Concomitant]
     Indication: TACHYCARDIA

REACTIONS (4)
  - Foreign body [Unknown]
  - Adverse event [Not Recovered/Not Resolved]
  - Tachycardia [Unknown]
  - Drug ineffective [Not Recovered/Not Resolved]
